FAERS Safety Report 5614098-6 (Version None)
Quarter: 2008Q1

REPORT INFORMATION
  Report Type: 
  Country: None (occurrence: None)
  Receive Date: 20080205
  Receipt Date: 20080122
  Transmission Date: 20080703
  Serious: Yes (Death)
  Sender: FDA-Public Use
  Company Number: US-KINGPHARMUSA00001-K200800099

PATIENT

DRUGS (9)
  1. ALTACE [Suspect]
     Route: 048
  2. CARDIAC GLYCOSIDES [Suspect]
  3. CARVEDILOL [Suspect]
  4. POTASSIUM CHLORIDE [Suspect]
  5. FERROUS SULFATE TAB [Suspect]
  6. FUROSEMIDE [Suspect]
  7. AMIODARONE HCL [Suspect]
  8. WARFARIN SODIUM [Suspect]
  9. FLUOXETINE [Suspect]

REACTIONS (1)
  - DEATH [None]
